FAERS Safety Report 4772872-2 (Version None)
Quarter: 2005Q3

REPORT INFORMATION
  Report Type: 
  Country: None (occurrence: None)
  Receive Date: 20050915
  Receipt Date: 20050915
  Transmission Date: 20060218
  Serious: Yes (Other)
  Sender: FDA-Public Use
  Company Number: None

PATIENT
  Age: 49 Year
  Sex: Female
  Weight: 117.9352 kg

DRUGS (2)
  1. FENTANYL [Suspect]
     Indication: ARTHRALGIA
     Dosage: 1-25MCG PATCH EVERY 72H TRANSDERMAL
     Route: 062
  2. FENTANYL [Suspect]
     Indication: BACK PAIN
     Dosage: 1-25MCG PATCH EVERY 72H TRANSDERMAL
     Route: 062

REACTIONS (5)
  - DIZZINESS [None]
  - FATIGUE [None]
  - INADEQUATE ANALGESIA [None]
  - LETHARGY [None]
  - PHARMACEUTICAL PRODUCT COMPLAINT [None]
